FAERS Safety Report 14688134 (Version 1)
Quarter: 2018Q1

REPORT INFORMATION
  Report Type: Spontaneous
  Country: US (occurrence: US)
  Receive Date: 20180328
  Receipt Date: 20180328
  Transmission Date: 20180509
  Serious: No
  Sender: FDA-Public Use
  Company Number: US-PFIZER INC-2018126758

PATIENT
  Age: 68 Year
  Sex: Male
  Weight: 87 kg

DRUGS (1)
  1. GENOTROPIN [Suspect]
     Active Substance: SOMATROPIN
     Indication: PITUITARY TUMOUR BENIGN
     Dosage: 0.4 MG, DAILY
     Route: 058

REACTIONS (2)
  - Headache [Unknown]
  - Product use in unapproved indication [Unknown]
